FAERS Safety Report 9837941 (Version 1)
Quarter: 2014Q1

REPORT INFORMATION
  Report Type: Spontaneous
  Country: US (occurrence: US)
  Receive Date: 20140123
  Receipt Date: 20140123
  Transmission Date: 20141002
  Serious: No
  Sender: FDA-Public Use
  Company Number: US-009507513-1401USA005660

PATIENT
  Age: 26 Year
  Sex: Female

DRUGS (2)
  1. CLARITIN [Suspect]
     Indication: NASOPHARYNGITIS
     Dosage: UNK, UNKNOWN
     Route: 048
  2. CLARITIN [Suspect]
     Indication: RESPIRATORY TRACT CONGESTION

REACTIONS (2)
  - Overdose [Unknown]
  - Off label use [Unknown]
